FAERS Safety Report 23166812 (Version 1)
Quarter: 2023Q4

REPORT INFORMATION
  Report Type: Spontaneous
  Country: US (occurrence: US)
  Receive Date: 20231109
  Receipt Date: 20231109
  Transmission Date: 20240110
  Serious: No
  Sender: FDA-Public Use
  Company Number: US-SANDOZ-SDZ2023US007218

PATIENT
  Sex: Female

DRUGS (2)
  1. ENTRESTO [Suspect]
     Active Substance: SACUBITRIL\VALSARTAN
     Indication: Product used for unknown indication
     Route: 065
  2. LOSARTAN [Suspect]
     Active Substance: LOSARTAN
     Indication: Product used for unknown indication
     Route: 065

REACTIONS (11)
  - Heart rate increased [Unknown]
  - Illness [Unknown]
  - Product dose omission issue [Unknown]
  - Feeling abnormal [Unknown]
  - Pain [Unknown]
  - Weight loss poor [Unknown]
  - Therapy change [Unknown]
  - Euphoric mood [Unknown]
  - Positive airway pressure therapy [Unknown]
  - Blood pressure decreased [Unknown]
  - Overdose [Unknown]
